FAERS Safety Report 4803824-1 (Version None)
Quarter: 2005Q4

REPORT INFORMATION
  Report Type: 
  Country: None (occurrence: None)
  Receive Date: 20051019
  Receipt Date: 20050630
  Transmission Date: 20060501
  Serious: Yes (Congenital Anomaly)
  Sender: FDA-Public Use
  Company Number: FR-MERCK-0507FRA00004

PATIENT
  Age: 0 Day
  Sex: Male

DRUGS (1)
  1. PROPECIA [Suspect]
     Indication: ALOPECIA
     Route: 065

REACTIONS (4)
  - CONGENITAL ANOMALY [None]
  - HYPOSPADIAS [None]
  - PENIS DISORDER [None]
  - TRANSMISSION OF DRUG VIA SEMEN [None]
